FAERS Safety Report 6489957-5 (Version None)
Quarter: 2009Q4

REPORT INFORMATION
  Report Type: 
  Country: None (occurrence: None)
  Receive Date: 20091211
  Receipt Date: 20091201
  Transmission Date: 20100525
  Serious: Yes (Hospitalization)
  Sender: FDA-Public Use
  Company Number: PHHY2009BR53450

PATIENT
  Age: 29 Year
  Sex: Female
  Weight: 58 kg

DRUGS (1)
  1. PARLODEL [Suspect]
     Indication: OVULATION DISORDER
     Dosage: 2.5 MG, 1 TABLET PER DAY
     Route: 048
     Dates: start: 20091126

REACTIONS (5)
  - PHOTOSENSITIVITY REACTION [None]
  - PRURITUS [None]
  - SKIN BURNING SENSATION [None]
  - SOMNOLENCE [None]
  - URTICARIA [None]
